FAERS Safety Report 4487411-3 (Version None)
Quarter: 2004Q4

REPORT INFORMATION
  Report Type: 
  Country: None (occurrence: None)
  Receive Date: 20041027
  Receipt Date: 20041021
  Transmission Date: 20050328
  Serious: Yes (Other)
  Sender: FDA-Public Use
  Company Number: US-MERCK-0410USA03399

PATIENT
  Age: 48 Year
  Sex: Female

DRUGS (15)
  1. VIOXX [Suspect]
     Indication: ARTHRITIS
     Route: 048
     Dates: start: 20020301, end: 20041009
  2. LIPITOR [Concomitant]
     Route: 065
  3. CALCIUM (UNSPECIFIED) AND VITAMIN D (UNSPECIFIED) [Concomitant]
     Route: 065
  4. PREMARIN [Concomitant]
     Route: 065
  5. BENZONATATE [Concomitant]
     Route: 065
  6. ENDODAN [Concomitant]
     Route: 065
  7. RANITIDINE [Concomitant]
     Route: 065
  8. SUDAFED S.A. [Concomitant]
     Route: 065
  9. ALLEGRA [Concomitant]
     Route: 065
  10. LORAZEPAM [Concomitant]
     Route: 065
  11. FUROSEMIDE [Concomitant]
     Route: 065
  12. VALPROIC ACID [Concomitant]
     Route: 065
  13. QUININE SULFATE [Concomitant]
     Route: 065
  14. GASTROINTESTINAL PREPARATIONS (UNSPECIFIED) [Concomitant]
     Route: 065
  15. THEOPHYLLINE [Concomitant]
     Route: 065

REACTIONS (2)
  - CHEST PAIN [None]
  - CONVULSION [None]
